FAERS Safety Report 6054421-4 (Version None)
Quarter: 2009Q1

REPORT INFORMATION
  Report Type: 
  Country: None (occurrence: None)
  Receive Date: 20090127
  Receipt Date: 20090120
  Transmission Date: 20090719
  Serious: Yes (Hospitalization)
  Sender: FDA-Public Use
  Company Number: JP-B.I. PHARMACEUTICALS,INC./RIDGEFIELD-2009-BP-00668NB

PATIENT

DRUGS (1)
  1. MICARDIS [Suspect]
     Dosage: 2ANZ
     Route: 048

REACTIONS (3)
  - PHARYNGEAL OEDEMA [None]
  - RENAL FAILURE [None]
  - SWELLING FACE [None]
